FAERS Safety Report 8019072 (Version 2)
Quarter: 2013Q1

REPORT INFORMATION
  Report Type: Spontaneous
  Country: US (occurrence: US)
  Receive Date: 20110701
  Receipt Date: 20130321
  Transmission Date: 20140127
  Serious: Yes (Death)
  Sender: FDA-Public Use
  Company Number: US-WATSON-2011-09074

PATIENT
  Age: 43 None
  Sex: Female

DRUGS (1)
  1. FENTANYL [Suspect]
     Indication: BACK PAIN
     Dosage: 50MCG, 1 PATCH EVERY 3 DAYS
     Route: 062
     Dates: start: 20090225, end: 20090308

REACTIONS (7)
  - Accidental overdose [Fatal]
  - Toxicity to various agents [Fatal]
  - Vomiting [Fatal]
  - Irritability [Fatal]
  - Feeling abnormal [Fatal]
  - Pain [Fatal]
  - Somnolence [Fatal]
